FAERS Safety Report 17017059 (Version 1)
Quarter: 2019Q4

REPORT INFORMATION
  Report Type: Spontaneous
  Country: TW (occurrence: TW)
  Receive Date: 20191111
  Receipt Date: 20191111
  Transmission Date: 20200122
  Serious: Yes (Other)
  Sender: FDA-Public Use
  Company Number: TW-SA-2019SA305285

PATIENT
  Age: 65 Year
  Sex: Male

DRUGS (4)
  1. ISONIAZID. [Suspect]
     Active Substance: ISONIAZID
     Indication: TUBERCULOSIS
     Dosage: UNK UNK, QD
     Dates: start: 2016
  2. PYRAZINAMIDE. [Suspect]
     Active Substance: PYRAZINAMIDE
     Indication: TUBERCULOSIS
     Dosage: UNK UNK, QD
     Dates: start: 2016
  3. RIFAMPICIN [Suspect]
     Active Substance: RIFAMPIN
     Indication: TUBERCULOSIS
     Dosage: UNK UNK, QD
     Dates: start: 2016
  4. ETHAMBUTOL [Suspect]
     Active Substance: ETHAMBUTOL HYDROCHLORIDE
     Indication: TUBERCULOSIS
     Dosage: UNK UNK, QD
     Dates: start: 2016

REACTIONS (3)
  - Myelodysplastic syndrome [Recovering/Resolving]
  - Refractory anaemia with an excess of blasts [Recovering/Resolving]
  - Pancytopenia [Recovering/Resolving]
